FAERS Safety Report 5261762-7 (Version None)
Quarter: 2007Q1

REPORT INFORMATION
  Report Type: 
  Country: None (occurrence: None)
  Receive Date: 20070307
  Receipt Date: 20070222
  Transmission Date: 20070707
  Serious: Yes (Hospitalization)
  Sender: FDA-Public Use
  Company Number: S07-FRA-00981-01

PATIENT
  Sex: Female

DRUGS (2)
  1. SEROPLEX (ESCITALOPRAM) [Suspect]
     Indication: DEPRESSION
     Dates: start: 20070122
  2. XANAX [Concomitant]

REACTIONS (4)
  - ARTERIAL DISORDER [None]
  - CEREBRAL HAEMATOMA [None]
  - HEADACHE [None]
  - MENINGORRHAGIA [None]
